FAERS Safety Report 5322291-5 (Version None)
Quarter: 2007Q2

REPORT INFORMATION
  Report Type: 
  Country: None (occurrence: None)
  Receive Date: 20070511
  Receipt Date: 20070508
  Transmission Date: 20071010
  Serious: Yes (Other)
  Sender: FDA-Public Use
  Company Number: B0464739A

PATIENT
  Age: 8 Year
  Sex: Female
  Weight: 19 kg

DRUGS (2)
  1. RELENZA [Suspect]
     Indication: INFLUENZA
     Dosage: 10MG SINGLE DOSE
     Route: 055
     Dates: start: 20070329, end: 20070329
  2. ANHIBA [Concomitant]
     Indication: PYREXIA
     Route: 054

REACTIONS (1)
  - HALLUCINATION, AUDITORY [None]
